FAERS Safety Report 14916880 (Version 1)
Quarter: 2018Q2

REPORT INFORMATION
  Report Type: Spontaneous
  Country: US (occurrence: US)
  Receive Date: 20180520
  Receipt Date: 20180520
  Transmission Date: 20180711
  Serious: No
  Sender: FDA-Public Use
  Company Number: US-JNJFOC-20180437189

PATIENT
  Age: 6 Month
  Sex: Female
  Weight: 4.99 kg

DRUGS (1)
  1. INFANTS TYLENOL [Suspect]
     Active Substance: ACETAMINOPHEN
     Indication: OSTEOGENESIS IMPERFECTA
     Dosage: EVERY HOUR AND 45 MINUTES (DOSAGE WAS GIVEN AT 8:00 AM, 10:00 AM AND 12:20 PM AT DAY OF REPORT)
     Route: 048
     Dates: end: 20180426

REACTIONS (2)
  - Product use in unapproved indication [Unknown]
  - Off label use [Unknown]
